FAERS Safety Report 6094802-6 (Version None)
Quarter: 2009Q1

REPORT INFORMATION
  Report Type: 
  Country: None (occurrence: None)
  Receive Date: 20090225
  Receipt Date: 20090213
  Transmission Date: 20090719
  Serious: Yes (Other)
  Sender: FDA-Public Use
  Company Number: 231414K09USA

PATIENT
  Age: 42 Year
  Sex: Female
  Weight: 77 kg

DRUGS (2)
  1. REBIF [Suspect]
     Indication: MULTIPLE SCLEROSIS
     Dosage: 44 MCG, 3 IN 1 WEEKS, SUBCUTANEOUS
     Route: 058
     Dates: start: 20061130
  2. FLUOXETINE [Concomitant]

REACTIONS (1)
  - ABDOMINAL HERNIA [None]
